FAERS Safety Report 4666100-6 (Version None)
Quarter: 2005Q2

REPORT INFORMATION
  Report Type: 
  Country: None (occurrence: None)
  Receive Date: 20050519
  Receipt Date: 20050428
  Transmission Date: 20051028
  Serious: Yes (Death)
  Sender: FDA-Public Use
  Company Number: JP-GLAXOSMITHKLINE-B0380016A

PATIENT
  Age: 58 Year
  Sex: Male
  Weight: 54 kg

DRUGS (8)
  1. PAXIL [Suspect]
     Indication: DEPRESSION
     Dosage: 10MG PER DAY
     Route: 048
     Dates: start: 20050412
  2. URINORM [Concomitant]
     Dosage: 25MG PER DAY
     Route: 048
     Dates: start: 19980613
  3. URALYT [Concomitant]
     Dosage: 3G PER DAY
     Route: 048
     Dates: start: 20010721
  4. ZANTAC [Concomitant]
     Indication: GASTRITIS
     Dosage: 150MG PER DAY
     Route: 048
     Dates: start: 20030613
  5. LENDORM [Concomitant]
     Indication: INSOMNIA
     Dosage: .25MG PER DAY
     Route: 048
     Dates: start: 20030920, end: 20031003
  6. HALCION [Concomitant]
     Indication: INSOMNIA
     Dosage: .25MG PER DAY
     Route: 048
     Dates: start: 20031004
  7. SILECE [Concomitant]
     Indication: INSOMNIA
     Dosage: 1MG PER DAY
     Route: 048
     Dates: start: 20031004
  8. ATELEC [Concomitant]
     Indication: HYPERTENSION
     Dosage: 10MG PER DAY
     Route: 048
     Dates: start: 20031213

REACTIONS (1)
  - COMPLETED SUICIDE [None]
